FAERS Safety Report 22773579 (Version 5)
Quarter: 2024Q3

REPORT INFORMATION
  Report Type: Spontaneous
  Country: JP (occurrence: JP)
  Receive Date: 20230801
  Receipt Date: 20240911
  Transmission Date: 20241017
  Serious: Yes (Hospitalization, Other)
  Sender: MERCK
  Company Number: JP-MSD-2307JPN004023J

PATIENT
  Age: 7 Decade
  Sex: Male

DRUGS (3)
  1. KEYTRUDA [Suspect]
     Active Substance: PEMBROLIZUMAB
     Indication: Non-small cell lung cancer stage IV
     Dosage: 200 MILLIGRAM, Q3W
     Route: 041
     Dates: start: 20230619, end: 20230619
  2. CARBOPLATIN [Concomitant]
     Active Substance: CARBOPLATIN
     Dosage: UNK
     Route: 065
  3. PEMETREXED DISODIUM [Concomitant]
     Active Substance: PEMETREXED DISODIUM
     Dosage: UNK
     Route: 065

REACTIONS (3)
  - Malignant neoplasm progression [Unknown]
  - Meningitis [Unknown]
  - Hepatic function abnormal [Unknown]

NARRATIVE: CASE EVENT DATE: 20230702
